FAERS Safety Report 15553000 (Version 1)
Quarter: 2018Q4

REPORT INFORMATION
  Report Type: Spontaneous
  Country: LB (occurrence: LB)
  Receive Date: 20181026
  Receipt Date: 20181026
  Transmission Date: 20190205
  Serious: Yes (Death)
  Sender: FDA-Public Use
  Company Number: LB-ABBVIE-18K-093-2533337-00

PATIENT
  Age: 83 Year
  Sex: Female

DRUGS (1)
  1. VENETOCLAX. [Suspect]
     Active Substance: VENETOCLAX
     Indication: PLASMA CELL MYELOMA
     Route: 048

REACTIONS (1)
  - Plasma cell myeloma [Fatal]
